FAERS Safety Report 11552264 (Version 1)
Quarter: 2015Q3

REPORT INFORMATION
  Report Type: Report from Study
  Country: BR (occurrence: BR)
  Receive Date: 20150925
  Receipt Date: 20150925
  Transmission Date: 20151125
  Serious: Yes (Other)
  Sender: FDA-Public Use
  Company Number: PHHY2015BR114792

PATIENT
  Sex: Female
  Weight: 68 kg

DRUGS (1)
  1. DIOVAN HCT [Suspect]
     Active Substance: HYDROCHLOROTHIAZIDE\VALSARTAN
     Indication: HYPERTENSION
     Dosage: 1 DF (160/12.5 MG), QD (1 TABLET IN THE MORNING)
     Route: 065

REACTIONS (5)
  - Conjunctivitis bacterial [Unknown]
  - Visual acuity reduced [Unknown]
  - Vision blurred [Recovering/Resolving]
  - Retinal disorder [Unknown]
  - Corneal lesion [Unknown]
